FAERS Safety Report 7519557-7 (Version None)
Quarter: 2011Q2

REPORT INFORMATION
  Report Type: 
  Country: None (occurrence: None)
  Receive Date: 20110602
  Receipt Date: 20110526
  Transmission Date: 20111010
  Serious: Yes (Hospitalization, Disabling, Other)
  Sender: FDA-Public Use
  Company Number: US-PFIZER INC-2009150652

PATIENT
  Sex: Male
  Weight: 107.94 kg

DRUGS (15)
  1. PREVACID [Concomitant]
     Indication: DYSPEPSIA
     Dosage: UNK
  2. MELOXICAM [Concomitant]
     Dosage: UNK
  3. LYRICA [Suspect]
     Dosage: 150 MG, 2X/DAY
     Dates: start: 20070101
  4. OXYCODONE HCL [Concomitant]
     Dosage: UNK
  5. AMITRIPTYLINE [Concomitant]
     Indication: PAIN
     Dosage: 200 MG,DAILY
  6. AMBIEN [Concomitant]
     Dosage: UNK
  7. ADVAIR DISKUS 100/50 [Concomitant]
     Dosage: UNK
  8. CYMBALTA [Concomitant]
     Dosage: 600 MG, UNK
  9. VIAGRA [Suspect]
     Indication: ERECTILE DYSFUNCTION
     Dosage: UNK
     Route: 048
  10. LYRICA [Suspect]
     Indication: PAIN
     Dosage: UNK
     Route: 048
     Dates: start: 20060101
  11. SPIRIVA [Concomitant]
     Indication: CHRONIC OBSTRUCTIVE PULMONARY DISEASE
     Dosage: DAILY
  12. RHINOCORT [Concomitant]
     Dosage: UNK
  13. SKELAXIN [Concomitant]
     Dosage: UNK
  14. METHOTREXATE [Concomitant]
     Indication: ARTHRITIS
     Dosage: 15 MG, WEEKLY
  15. DICLOFENAC [Concomitant]
     Dosage: 75 MG, 2X/DAY

REACTIONS (2)
  - DYSPHAGIA [None]
  - DYSPEPSIA [None]
